FAERS Safety Report 10305149 (Version 2)
Quarter: 2014Q3

REPORT INFORMATION
  Report Type: Spontaneous
  Country: BR (occurrence: BR)
  Receive Date: 20140715
  Receipt Date: 20140715
  Transmission Date: 20150326
  Serious: Yes (Other)
  Sender: FDA-Public Use
  Company Number: BR-SANOFI-AVENTIS-2010SA020323

PATIENT
  Age: 76 Year
  Sex: Female
  Weight: 70 kg

DRUGS (2)
  1. AUTOPEN 24 [Concomitant]
     Active Substance: DEVICE
  2. LANTUS [Suspect]
     Active Substance: INSULIN GLARGINE
     Indication: TYPE 2 DIABETES MELLITUS
     Route: 058
     Dates: start: 20000421

REACTIONS (4)
  - Injection site haematoma [Recovered/Resolved]
  - Incorrect dose administered [Unknown]
  - Feeling abnormal [Recovered/Resolved]
  - Injection site pain [Recovered/Resolved]
